FAERS Safety Report 25533990 (Version 5)
Quarter: 2025Q3

REPORT INFORMATION
  Report Type: Spontaneous
  Country: US (occurrence: US)
  Receive Date: 20250709
  Receipt Date: 20250922
  Transmission Date: 20251021
  Serious: No
  Sender: PFIZER
  Company Number: US-PFIZER INC-PV202500081736

PATIENT
  Age: 68 Year
  Sex: Male

DRUGS (1)
  1. TUKYSA [Suspect]
     Active Substance: TUCATINIB
     Dosage: 150 MG, 2 TABLETS TWICE DAILY

REACTIONS (3)
  - Pharyngeal swelling [Unknown]
  - Dysphagia [Unknown]
  - Cough [Not Recovered/Not Resolved]
